FAERS Safety Report 8023792-1 (Version None)
Quarter: 2011Q4

REPORT INFORMATION
  Report Type: 
  Country: None (occurrence: None)
  Receive Date: 20111130
  Receipt Date: 20110203
  Transmission Date: 20120403
  Serious: Yes (Hospitalization)
  Sender: FDA-Public Use
  Company Number: 322758

PATIENT
  Age: 68 Year
  Sex: Female
  Weight: 65.8 kg

DRUGS (4)
  1. NOVOLOG [Suspect]
     Indication: TYPE 2 DIABETES MELLITUS
     Dosage: SLIDING SCALE, SUBCUTANEOUS
     Route: 058
  2. MULTIVITAMIN /0097801/ (ASCORBIC ACID, CALCIUM PANTOTHENATE, ERGOCALCI [Concomitant]
  3. ELAVIL /00002202/ (AMITRIPTYLINE HYDROCHLORIDE) [Concomitant]
  4. LANTUS /0148350/ (INSULIN GLARGINE) [Concomitant]

REACTIONS (2)
  - INCORRECT DOSE ADMINISTERED [None]
  - BLOOD GLUCOSE DECREASED [None]
